FAERS Safety Report 7803561-5 (Version None)
Quarter: 2011Q4

REPORT INFORMATION
  Report Type: 
  Country: None (occurrence: None)
  Receive Date: 20111009
  Receipt Date: 20110930
  Transmission Date: 20120403
  Serious: No
  Sender: FDA-Public Use
  Company Number: US-B.I. PHARMACEUTICALS,INC./RIDGEFIELD-2011-BP-23349BP

PATIENT
  Sex: Male

DRUGS (5)
  1. AMBIEN [Concomitant]
     Indication: INSOMNIA
  2. METOPROLOL TARTRATE [Concomitant]
     Indication: CARDIAC DISORDER
  3. PRADAXA [Suspect]
     Indication: ATRIAL FIBRILLATION
     Dosage: 300 MG
     Route: 048
     Dates: start: 20110819
  4. CLONAZEPAM [Concomitant]
     Indication: ANXIETY
  5. LOVASTATIN [Concomitant]
     Indication: BLOOD CHOLESTEROL INCREASED

REACTIONS (4)
  - LIP DRY [None]
  - GINGIVAL PAIN [None]
  - PARAESTHESIA ORAL [None]
  - LIP PAIN [None]
